FAERS Safety Report 7658640-2 (Version None)
Quarter: 2011Q3

REPORT INFORMATION
  Report Type: 
  Country: None (occurrence: None)
  Receive Date: 20110805
  Receipt Date: 20110803
  Transmission Date: 20111222
  Serious: Yes (Death)
  Sender: FDA-Public Use
  Company Number: RU-BRISTOL-MYERS SQUIBB COMPANY-14457592

PATIENT
  Age: 67 Year
  Sex: Male

DRUGS (1)
  1. SPRYCEL [Suspect]
     Indication: CHRONIC MYELOID LEUKAEMIA
     Dosage: STARTING DOSE 100MG/DAY (25AUG06) DOSE DECREASED TO 80MG/DAY(11APR07) DISCONTINUED ON 15NOV08.
     Route: 048
     Dates: start: 20060825, end: 20081115

REACTIONS (1)
  - ISCHAEMIC STROKE [None]
